FAERS Safety Report 7057444-1 (Version None)
Quarter: 2010Q4

REPORT INFORMATION
  Report Type: 
  Country: None (occurrence: None)
  Receive Date: 20101022
  Receipt Date: 20101008
  Transmission Date: 20110411
  Serious: Yes (Other)
  Sender: FDA-Public Use
  Company Number: PHHY2010BR68120

PATIENT
  Age: 77 Year
  Sex: Male
  Weight: 88 kg

DRUGS (4)
  1. RASILEZ [Suspect]
     Dosage: 150 MG ONCE DAILY
  2. RASILEZ [Suspect]
     Dosage: 300 MG/ DAY
  3. LOSARTAN [Concomitant]
     Dosage: 12.5
  4. ROSUVASTATIN [Concomitant]
     Dosage: 10 MG

REACTIONS (5)
  - BLOOD PRESSURE DECREASED [None]
  - HAEMATURIA [None]
  - OEDEMA PERIPHERAL [None]
  - PERICARDIAL EFFUSION [None]
  - PROTEINURIA [None]
